FAERS Safety Report 5710360-7 (Version None)
Quarter: 2008Q2

REPORT INFORMATION
  Report Type: 
  Country: None (occurrence: None)
  Receive Date: 20080418
  Receipt Date: 20080409
  Transmission Date: 20081010
  Serious: Yes (Other)
  Sender: FDA-Public Use
  Company Number: US-PFIZER INC-2008032010

PATIENT
  Sex: Male
  Weight: 83.9 kg

DRUGS (5)
  1. XANAX [Suspect]
  2. PROVIGIL [Suspect]
     Indication: SLEEP APNOEA SYNDROME
     Route: 048
     Dates: start: 20071204
  3. DALMANE [Suspect]
  4. AMBIEN [Concomitant]
  5. WARFARIN [Concomitant]

REACTIONS (7)
  - DIZZINESS [None]
  - DRUG INEFFECTIVE [None]
  - DRUG WITHDRAWAL SYNDROME [None]
  - HEADACHE [None]
  - LABILE HYPERTENSION [None]
  - MOUNTAIN SICKNESS ACUTE [None]
  - PSYCHOMOTOR HYPERACTIVITY [None]
